FAERS Safety Report 14081422 (Version 2)
Quarter: 2017Q4

REPORT INFORMATION
  Report Type: Spontaneous
  Country: CN (occurrence: CN)
  Receive Date: 20171012
  Receipt Date: 20171025
  Transmission Date: 20180321
  Serious: Yes (Death, Other)
  Sender: FDA-Public Use
  Company Number: CN-GILEAD-2017-0297944

PATIENT
  Age: 26 Year
  Sex: Male

DRUGS (3)
  1. SAQUINAVIR [Concomitant]
     Active Substance: SAQUINAVIR
  2. KALETRA [Concomitant]
     Active Substance: LOPINAVIR\RITONAVIR
  3. TRUVADA [Suspect]
     Active Substance: EMTRICITABINE\TENOFOVIR DISOPROXIL FUMARATE
     Indication: HIV TEST POSITIVE
     Dosage: UNK
     Route: 065

REACTIONS (1)
  - Immune reconstitution inflammatory syndrome associated Kaposi^s sarcoma [Fatal]
